FAERS Safety Report 18586981 (Version 4)
Quarter: 2024Q3

REPORT INFORMATION
  Report Type: Spontaneous
  Country: US (occurrence: US)
  Receive Date: 20201207
  Receipt Date: 20240802
  Transmission Date: 20241017
  Serious: Yes (Other)
  Sender: PFIZER
  Company Number: US-PFIZER INC-2020477546

PATIENT
  Age: 68 Year
  Sex: Female
  Weight: 91.99 kg

DRUGS (4)
  1. IBRANCE [Suspect]
     Active Substance: PALBOCICLIB
     Indication: Breast cancer female
     Dosage: 125 MG, CYCLIC (DAYS 1-21 AND THEN OFF FOR 7 DAYS)
     Route: 048
  2. IBRANCE [Suspect]
     Active Substance: PALBOCICLIB
     Dosage: TAKE 1 TAB DAYS 1-21, THEN OFF FOR 14 DAYS.
     Route: 048
  3. ARIMIDEX [Concomitant]
     Active Substance: ANASTROZOLE
     Dosage: 1 MG, DAILY
     Route: 048
  4. DENOSUMAB [Concomitant]
     Active Substance: DENOSUMAB
     Indication: Metastases to bone
     Dosage: UNK, EVERY 3 MONTHS

REACTIONS (7)
  - Neutropenia [Unknown]
  - Leukopenia [Unknown]
  - COVID-19 [Unknown]
  - Drug hypersensitivity [Unknown]
  - Vitamin B12 deficiency [Unknown]
  - Off label use [Unknown]
  - Product use issue [Unknown]

NARRATIVE: CASE EVENT DATE: 20201102
